FAERS Safety Report 8805696 (Version 2)
Quarter: 2012Q4

REPORT INFORMATION
  Report Type: 
  Country: AR (occurrence: AR)
  Receive Date: 20120924
  Receipt Date: 20121026
  Transmission Date: 20130627
  Serious: Yes (Other)
  Sender: FDA-Public Use
  Company Number: AR-ROCHE-1134371

PATIENT
  Sex: Female

DRUGS (1)
  1. LUCENTIS [Suspect]
     Indication: MACULOPATHY
     Dosage: Dose: 1 ampoule
     Route: 050
     Dates: start: 20120718, end: 201207

REACTIONS (1)
  - Breast cancer recurrent [Recovering/Resolving]
